FAERS Safety Report 11913170 (Version 4)
Quarter: 2016Q2

REPORT INFORMATION
  Report Type: Report from Study
  Country: BR (occurrence: BR)
  Receive Date: 20160113
  Receipt Date: 20160606
  Transmission Date: 20160815
  Serious: Yes (Hospitalization)
  Sender: FDA-Public Use
  Company Number: BR-ROCHE-1692725

PATIENT
  Sex: Female
  Weight: 53 kg

DRUGS (6)
  1. OFLOXACIN. [Concomitant]
     Active Substance: OFLOXACIN
     Route: 047
  2. ACTEMRA [Suspect]
     Active Substance: TOCILIZUMAB
     Indication: RHEUMATOID ARTHRITIS
     Dosage: MOST RECENT DOSE: 18/JUN/2015
     Route: 042
     Dates: start: 20140616
  3. TRAMADOL. [Concomitant]
     Active Substance: TRAMADOL
     Route: 065
  4. ATORVASTATIN [Concomitant]
     Active Substance: ATORVASTATIN
     Route: 065
  5. LOSARTAN. [Concomitant]
     Active Substance: LOSARTAN
     Dosage: ONE TABLET IN THE MORNING AND AT NIGHT
     Route: 065
  6. METICORTEN [Concomitant]
     Active Substance: PREDNISONE
     Route: 065

REACTIONS (1)
  - Bone erosion [Unknown]
